FAERS Safety Report 4714850-5 (Version None)
Quarter: 2005Q3

REPORT INFORMATION
  Report Type: 
  Country: None (occurrence: None)
  Receive Date: 20050712
  Receipt Date: 20050629
  Transmission Date: 20060218
  Serious: Yes (Other)
  Sender: FDA-Public Use
  Company Number: 2005092872

PATIENT
  Age: 1 Year
  Sex: Female
  Weight: 13 kg

DRUGS (4)
  1. VFEND [Suspect]
     Indication: ASPERGILLOSIS
     Dosage: 12 MG/KG (1 IN 2 D), NASOGASTRIC TUBE
  2. PHENYTOIN [Suspect]
     Indication: EPILEPSY
  3. PHENOBARBITONE (PHENOBARBITAL) [Concomitant]
  4. AMBISOME [Concomitant]

REACTIONS (4)
  - CONTRAINDICATION TO MEDICAL TREATMENT [None]
  - CONVULSION [None]
  - DRUG INTERACTION [None]
  - DRUG LEVEL DECREASED [None]
